FAERS Safety Report 5534765-2 (Version None)
Quarter: 2007Q4

REPORT INFORMATION
  Report Type: 
  Country: None (occurrence: None)
  Receive Date: 20071130
  Receipt Date: 20071116
  Transmission Date: 20080405
  Serious: Yes (Hospitalization)
  Sender: FDA-Public Use
  Company Number: 2007AL005000

PATIENT
  Age: 9 Year
  Sex: Female
  Weight: 18.6 kg

DRUGS (10)
  1. DICLOFENAC SODIUM [Suspect]
     Indication: DRUG USE FOR UNKNOWN INDICATION
     Dosage: 75 MG;QD;PO
     Route: 048
     Dates: start: 20061005
  2. TACROLIMUS [Concomitant]
  3. PREDNISOLONE [Concomitant]
  4. METHOTREXATE [Concomitant]
  5. TOCILIZUMAB [Concomitant]
  6. NAPROXEN [Concomitant]
  7. LANSOPRAZOLE [Concomitant]
  8. ASPIRIN [Concomitant]
  9. CYCLIZINE [Concomitant]
  10. SUCRALFATE [Concomitant]

REACTIONS (7)
  - BLOOD PRESSURE INCREASED [None]
  - HEART RATE INCREASED [None]
  - NAUSEA [None]
  - RASH ERYTHEMATOUS [None]
  - RASH MACULAR [None]
  - RESPIRATORY RATE INCREASED [None]
  - VOMITING [None]
